FAERS Safety Report 15292951 (Version 2)
Quarter: 2019Q2

REPORT INFORMATION
  Report Type: Spontaneous
  Country: RU (occurrence: RU)
  Receive Date: 20180819
  Receipt Date: 20190412
  Transmission Date: 20190711
  Serious: Yes (Hospitalization, Other)
  Sender: FDA-Public Use
  Company Number: RU-ASTRAZENECA-2018SE00085

PATIENT
  Age: 59 Year
  Sex: Female
  Weight: 73 kg

DRUGS (10)
  1. BERODUAL [Concomitant]
     Active Substance: FENOTEROL HYDROBROMIDE\IPRATROPIUM BROMIDE
  2. FORXIGA [Suspect]
     Active Substance: DAPAGLIFLOZIN
     Indication: TYPE 2 DIABETES MELLITUS
     Route: 048
     Dates: start: 2014
  3. LORISTA [Concomitant]
     Active Substance: LOSARTAN POTASSIUM
  4. LOSAP [Concomitant]
  5. GLIMEPIRIDE. [Concomitant]
     Active Substance: GLIMEPIRIDE
  6. JANUVIA [Concomitant]
     Active Substance: SITAGLIPTIN PHOSPHATE
  7. TRAJENTA [Concomitant]
     Active Substance: LINAGLIPTIN
  8. GLUCOPHAGE [Concomitant]
     Active Substance: METFORMIN HYDROCHLORIDE
  9. MEXIDOL [Concomitant]
  10. OCTOLIPEN [Concomitant]

REACTIONS (9)
  - Blood glucose increased [Recovered/Resolved]
  - Therapy cessation [Unknown]
  - Blood pressure increased [Unknown]
  - Nasopharyngitis [Unknown]
  - Pancreatic disorder [Recovered/Resolved]
  - Malaise [Unknown]
  - Blood cholesterol increased [Recovered/Resolved]
  - Dry mouth [Not Recovered/Not Resolved]
  - Genital discomfort [Not Recovered/Not Resolved]
